FAERS Safety Report 7025126-8 (Version None)
Quarter: 2010Q4

REPORT INFORMATION
  Report Type: 
  Country: None (occurrence: None)
  Receive Date: 20101001
  Receipt Date: 20100923
  Transmission Date: 20110411
  Serious: Yes (Hospitalization)
  Sender: FDA-Public Use
  Company Number: US-PURDUE-USA-2010-0046063

PATIENT
  Sex: Female
  Weight: 74.83 kg

DRUGS (1)
  1. OXYCONTIN [Suspect]
     Indication: PAIN
     Dosage: 320 MG, Q12H
     Dates: start: 20100801

REACTIONS (5)
  - DEHYDRATION [None]
  - DIARRHOEA [None]
  - DRUG WITHDRAWAL SYNDROME [None]
  - NAUSEA [None]
  - VOMITING [None]
